FAERS Safety Report 9310408 (Version 2)
Quarter: 2013Q2

REPORT INFORMATION
  Report Type: Spontaneous
  Country: US (occurrence: US)
  Receive Date: 20130527
  Receipt Date: 20130531
  Transmission Date: 20140414
  Serious: No
  Sender: FDA-Public Use
  Company Number: US-PFIZER INC-2013158885

PATIENT
  Age: 53 Year
  Sex: Female
  Weight: 75 kg

DRUGS (3)
  1. PREMARIN [Suspect]
     Indication: HORMONE REPLACEMENT THERAPY
     Dosage: 0.625 MG, 1X/DAY
     Route: 048
     Dates: start: 2006, end: 201305
  2. PREMARIN [Suspect]
     Dosage: 0.3 MG, 1X/DAY
     Route: 048
     Dates: start: 201305, end: 201305
  3. PREMARIN [Suspect]
     Dosage: 0.625 MG, 1X/DAY
     Route: 048
     Dates: start: 201305

REACTIONS (2)
  - Product quality issue [Unknown]
  - Rash [Recovered/Resolved]
